FAERS Safety Report 5125293-7 (Version None)
Quarter: 2006Q4

REPORT INFORMATION
  Report Type: 
  Country: None (occurrence: None)
  Receive Date: 20061010
  Receipt Date: 20061003
  Transmission Date: 20070319
  Serious: Yes (Hospitalization)
  Sender: FDA-Public Use
  Company Number: E2090-00091-SPO-FR

PATIENT
  Age: 26 Year
  Sex: Male

DRUGS (4)
  1. ZONEGRAN [Suspect]
     Indication: EPILEPSY
     Dosage: 200 MG
     Dates: start: 20060601
  2. TEGRETOL [Concomitant]
  3. DEPAKENE [Concomitant]
  4. LAMICTAL [Concomitant]

REACTIONS (2)
  - CALCULUS URINARY [None]
  - MICROLITHIASIS [None]
